FAERS Safety Report 8054846-1 (Version None)
Quarter: 2012Q1

REPORT INFORMATION
  Report Type: 
  Country: None (occurrence: None)
  Receive Date: 20120119
  Receipt Date: 20120112
  Transmission Date: 20120608
  Serious: Yes (Hospitalization, Other)
  Sender: FDA-Public Use
  Company Number: US-JNJFOC-20120104770

PATIENT
  Sex: Female
  Weight: 52.62 kg

DRUGS (2)
  1. OPIUM TINCTURE [Concomitant]
     Indication: PAIN
     Route: 065
     Dates: start: 19960101
  2. REMICADE [Suspect]
     Indication: CROHN'S DISEASE
     Route: 042
     Dates: start: 20090101

REACTIONS (7)
  - PLATELET COUNT DECREASED [None]
  - ABDOMINAL DISTENSION [None]
  - WEIGHT DECREASED [None]
  - NEPHROLITHIASIS [None]
  - EPISTAXIS [None]
  - GROIN PAIN [None]
  - HAEMATOCRIT DECREASED [None]
